FAERS Safety Report 19577333 (Version 1)
Quarter: 2021Q3

REPORT INFORMATION
  Report Type: Spontaneous
  Country: JP (occurrence: JP)
  Receive Date: 20210719
  Receipt Date: 20210719
  Transmission Date: 20211014
  Serious: Yes (Hospitalization)
  Sender: FDA-Public Use
  Company Number: JP-PFIZER INC-2021842096

PATIENT
  Age: 66 Year
  Sex: Male

DRUGS (1)
  1. HYDROCORTISONE SODIUM SUCCINATE [Suspect]
     Active Substance: HYDROCORTISONE SODIUM SUCCINATE
     Indication: SUDDEN HEARING LOSS
     Dosage: 400 MG, DAILY

REACTIONS (3)
  - Vascular pseudoaneurysm [Recovering/Resolving]
  - Sepsis [Recovering/Resolving]
  - Vascular rupture [Recovering/Resolving]
